FAERS Safety Report 21749340 (Version 1)
Quarter: 2022Q4

REPORT INFORMATION
  Report Type: Spontaneous
  Country: US (occurrence: None)
  Receive Date: 20221217
  Receipt Date: 20221217
  Transmission Date: 20230113
  Serious: Yes (Other)
  Sender: FDA-Public Use
  Company Number: None

PATIENT
  Sex: Female

DRUGS (9)
  1. ACTEMRA [Suspect]
     Active Substance: TOCILIZUMAB
     Indication: Polymyalgia rheumatica
     Dosage: 162MG/0.9ML ?INJECT 162 MG UNDER THE SKIN (SUBCUTANEOUS INJECTION) ONCE A WEEK? ?
     Route: 058
     Dates: start: 20220419
  2. FLUOROURACIL CRE [Concomitant]
  3. LATANOPROST POW [Concomitant]
  4. LORAZEPAM TAB [Concomitant]
  5. NEURONTIN CAP [Concomitant]
  6. OMEPRAZOLE SODIUM [Concomitant]
     Active Substance: OMEPRAZOLE SODIUM
  7. PREDNISONE [Concomitant]
     Active Substance: PREDNISONE
  8. TRAMADOL HCL TAB [Concomitant]
  9. TRAZODONE TAB [Concomitant]

REACTIONS (1)
  - Skin cancer [None]
